FAERS Safety Report 16676525 (Version 2)
Quarter: 2019Q3

REPORT INFORMATION
  Report Type: Spontaneous
  Country: CN (occurrence: CN)
  Receive Date: 20190807
  Receipt Date: 20190809
  Transmission Date: 20191004
  Serious: Yes (Hospitalization, Other)
  Sender: FDA-Public Use
  Company Number: CN-ASTRAZENECA-2019SF09147

PATIENT
  Sex: Female

DRUGS (3)
  1. IRESSA [Suspect]
     Active Substance: GEFITINIB
     Indication: NON-SMALL CELL LUNG CANCER
     Dosage: ONE TABLET PER DAY ORALLY
     Route: 048
     Dates: start: 201808, end: 201907
  2. LACIDIPINE [Concomitant]
     Active Substance: LACIDIPINE
     Dosage: 4MG ONE TABLET AT A TIME, ONCE A DAY
     Route: 048
  3. BETALOC [Concomitant]
     Active Substance: METOPROLOL TARTRATE
     Indication: HYPERTENSION

REACTIONS (5)
  - Drug resistance [Unknown]
  - Pleural effusion [Recovered/Resolved]
  - Blood test [Unknown]
  - Malignant neoplasm progression [Unknown]
  - Chest discomfort [Unknown]
